FAERS Safety Report 4596506-5 (Version None)
Quarter: 2005Q1

REPORT INFORMATION
  Report Type: 
  Country: None (occurrence: None)
  Receive Date: 20050302
  Receipt Date: 20050221
  Transmission Date: 20050727
  Serious: Yes (Other)
  Sender: FDA-Public Use
  Company Number: AU-SANOFI-SYNTHELABO-A01200501108

PATIENT

DRUGS (1)
  1. PLAVIX [Suspect]
     Indication: ATRIAL FIBRILLATION
     Dosage: UNK
     Route: 048

REACTIONS (1)
  - DEEP VEIN THROMBOSIS [None]
